FAERS Safety Report 22181026 (Version 1)
Quarter: 2023Q2

REPORT INFORMATION
  Report Type: Spontaneous
  Country: US (occurrence: None)
  Receive Date: 20230405
  Receipt Date: 20230405
  Transmission Date: 20230722
  Serious: Yes (Other)
  Sender: FDA-Public Use
  Company Number: None

PATIENT
  Age: 72 Year
  Sex: Female
  Weight: 62.55 kg

DRUGS (20)
  1. ISOSORBIDE MONONITRATE [Suspect]
     Active Substance: ISOSORBIDE MONONITRATE
     Indication: Hypertension
     Dosage: 1 TABLET ORAL?
     Route: 048
     Dates: start: 20230114, end: 20230405
  2. CLONIDINE [Concomitant]
     Active Substance: CLONIDINE
  3. OXYBUTYNIN [Concomitant]
     Active Substance: OXYBUTYNIN
  4. HYDROXYZINE [Concomitant]
     Active Substance: HYDROXYZINE HYDROCHLORIDE
  5. LIOTHYRONINE [Concomitant]
     Active Substance: LIOTHYRONINE
  6. ISOSORBIDE MONONITRATE [Concomitant]
     Active Substance: ISOSORBIDE MONONITRATE
  7. IODINE [Concomitant]
     Active Substance: IODINE
  8. SELENIUM [Concomitant]
     Active Substance: SELENIUM
  9. ZINC [Concomitant]
     Active Substance: ZINC
  10. POTASSIUM [Concomitant]
     Active Substance: POTASSIUM
  11. PROPECIA [Concomitant]
     Active Substance: FINASTERIDE
  12. UNSPECIFIED INGREDIENT [Concomitant]
     Active Substance: UNSPECIFIED INGREDIENT
  13. methycolobalin [Concomitant]
  14. FOLATE SODIUM [Concomitant]
     Active Substance: FOLATE SODIUM
  15. IODINE [Concomitant]
     Active Substance: IODINE
  16. VITAMIN D NOS [Concomitant]
     Active Substance: VITAMIN D NOS
  17. VITAMIN B COMPLEX [Concomitant]
     Active Substance: CYANOCOBALAMIN\DEXPANTHENOL\NIACINAMIDE\PYRIDOXINE HYDROCHLORIDE\RIBOFLAVIN 5^-PHOSPHATE SODIUM\THIA
  18. MAGNESIUM [Concomitant]
     Active Substance: MAGNESIUM
  19. pine bark [Concomitant]
  20. BETAINE HCL [Concomitant]

REACTIONS (3)
  - Therapeutic product effect decreased [None]
  - Blood pressure decreased [None]
  - Product quality issue [None]

NARRATIVE: CASE EVENT DATE: 20230117
